FAERS Safety Report 10736659 (Version 3)
Quarter: 2015Q1

REPORT INFORMATION
  Report Type: Spontaneous
  Country: CN (occurrence: None)
  Receive Date: 20150122
  Receipt Date: 20150317
  Transmission Date: 20150721
  Serious: Yes (Hospitalization)
  Sender: FDA-Public Use
  Company Number: CN2015GSK006813

PATIENT
  Age: 40 Year
  Sex: Male

DRUGS (2)
  1. HEPTODIN [Suspect]
     Active Substance: LAMIVUDINE
     Indication: HEPATITIS B
     Route: 048
  2. HEPSERA [Suspect]
     Active Substance: ADEFOVIR DIPIVOXIL
     Indication: HEPATITIS B
     Route: 048

REACTIONS (2)
  - Hepatitis [None]
  - Viral load [None]

NARRATIVE: CASE EVENT DATE: 2013
